FAERS Safety Report 5247663-9 (Version None)
Quarter: 2007Q1

REPORT INFORMATION
  Report Type: 
  Country: None (occurrence: None)
  Receive Date: 20070220
  Receipt Date: 20070206
  Transmission Date: 20070707
  Serious: Yes (Other)
  Sender: FDA-Public Use
  Company Number: 070208-0000168

PATIENT
  Age: 18 Year
  Sex: Female

DRUGS (2)
  1. L-ASPARAGINASE (ASPARAGINASE) [Suspect]
     Indication: ACUTE LYMPHOCYTIC LEUKAEMIA
  2. ORAL CONTRACEPTIVE NOS (ORAL CONTRACEPTIVE NOS) [Suspect]
     Indication: CONTRACEPTION
     Dosage: UNKNOWN; UNK; PO
     Route: 048

REACTIONS (1)
  - VENA CAVA THROMBOSIS [None]
